FAERS Safety Report 17668505 (Version 1)
Quarter: 2020Q2

REPORT INFORMATION
  Report Type: Spontaneous
  Country: US (occurrence: US)
  Receive Date: 20200415
  Receipt Date: 20200415
  Transmission Date: 20200713
  Serious: No
  Sender: FDA-Public Use
  Company Number: US-ASTRAZENECA-2020SE47676

PATIENT
  Age: 79 Year
  Sex: Female

DRUGS (2)
  1. PULMICORT FLEXHALER [Suspect]
     Active Substance: BUDESONIDE
     Indication: MULTIPLE ALLERGIES
     Dosage: 180.0UG UNKNOWN
     Route: 055
  2. PULMICORT FLEXHALER [Suspect]
     Active Substance: BUDESONIDE
     Indication: LUNG DISORDER
     Dosage: 180.0UG UNKNOWN
     Route: 055

REACTIONS (6)
  - Cough [Unknown]
  - Intentional device misuse [Unknown]
  - Choking [Unknown]
  - Malaise [Unknown]
  - Wrong technique in device usage process [Unknown]
  - Device issue [Unknown]
